FAERS Safety Report 25060773 (Version 1)
Quarter: 2025Q1

REPORT INFORMATION
  Report Type: Report from Study
  Country: ES (occurrence: ES)
  Receive Date: 20250310
  Receipt Date: 20250310
  Transmission Date: 20250408
  Serious: Yes (Hospitalization)
  Sender: ABBVIE
  Company Number: ES-ABBVIE-6125519

PATIENT
  Age: 52 Year
  Sex: Male

DRUGS (2)
  1. CARBIDOPA\LEVODOPA [Suspect]
     Active Substance: CARBIDOPA\LEVODOPA
     Indication: Parkinson^s disease
     Route: 050
     Dates: start: 20240830
  2. CARBIDOPA\LEVODOPA [Suspect]
     Active Substance: CARBIDOPA\LEVODOPA

REACTIONS (7)
  - Contracted bladder [Not Recovered/Not Resolved]
  - Stoma site induration [Unknown]
  - Stoma site pain [Not Recovered/Not Resolved]
  - Pain [Unknown]
  - Stoma site reaction [Unknown]
  - Device breakage [Unknown]
  - Stoma site pain [Unknown]

NARRATIVE: CASE EVENT DATE: 20250201
